FAERS Safety Report 9296067 (Version 1)
Quarter: 2013Q2

REPORT INFORMATION
  Report Type: Spontaneous
  Country: US (occurrence: US)
  Receive Date: 20130517
  Receipt Date: 20130517
  Transmission Date: 20140414
  Serious: No
  Sender: FDA-Public Use
  Company Number: US-BAYER-2013-061134

PATIENT
  Sex: Female

DRUGS (1)
  1. MENOSTAR [Suspect]
     Dosage: UNK
     Dates: start: 1993

REACTIONS (2)
  - Feeling abnormal [None]
  - Product adhesion issue [None]
